FAERS Safety Report 5048653-1 (Version None)
Quarter: 2006Q3

REPORT INFORMATION
  Report Type: 
  Country: None (occurrence: None)
  Receive Date: 20060705
  Receipt Date: 20060613
  Transmission Date: 20061208
  Serious: Yes (Other)
  Sender: FDA-Public Use
  Company Number: FR200606003763

PATIENT
  Age: 78 Year
  Sex: Male

DRUGS (7)
  1. YENTREVE(DULOXETINE HYDROCHLORIDE) [Suspect]
     Indication: PAIN
     Dosage: 60 MG, DAILY (1/D), ORAL
     Route: 048
     Dates: start: 20060315
  2. MOSCONTIN (MORPHINE SULFATE) [Concomitant]
  3. MORPHINE SULFATE [Concomitant]
  4. COVERSYL (PERINDOPRIL) [Concomitant]
  5. CORDARONE [Concomitant]
  6. DISCOTRINE (GLYCERYL TRINITRATE) [Concomitant]
  7. ASPIRIN [Concomitant]

REACTIONS (1)
  - ASCITES [None]
